FAERS Safety Report 21411367 (Version 17)
Quarter: 2023Q4

REPORT INFORMATION
  Report Type: Spontaneous
  Country: US (occurrence: US)
  Receive Date: 20221005
  Receipt Date: 20231215
  Transmission Date: 20240110
  Serious: Yes (Hospitalization, Other)
  Sender: FDA-Public Use
  Company Number: US-PFIZER INC-202201203849

PATIENT
  Age: 70 Year
  Sex: Female
  Weight: 60.33 kg

DRUGS (3)
  1. IBRANCE [Suspect]
     Active Substance: PALBOCICLIB
     Indication: Breast cancer metastatic
     Dosage: 125 MG, CYCLIC (1 TABLET NIGHTLY BETWEEN 8:00-8:30PM DAILY FOR 3 WEEKS AND THEN OFF FOR 1 WEEK)
     Route: 048
     Dates: start: 202204
  2. IBRANCE [Suspect]
     Active Substance: PALBOCICLIB
     Indication: Neoplasm malignant
  3. LETROZOLE [Concomitant]
     Active Substance: LETROZOLE
     Dosage: UNK
     Dates: start: 202203

REACTIONS (37)
  - Constipation [Recovered/Resolved]
  - Loss of consciousness [Unknown]
  - Pneumonia [Unknown]
  - Blood pressure decreased [Unknown]
  - Abdominal pain [Unknown]
  - Pain [Recovered/Resolved]
  - Neck pain [Recovered/Resolved]
  - Spinal pain [Recovered/Resolved]
  - Nasopharyngitis [Recovered/Resolved]
  - Pyrexia [Unknown]
  - Blood potassium decreased [Unknown]
  - Eating disorder [Unknown]
  - Bronchitis [Unknown]
  - Red blood cell count abnormal [Unknown]
  - White blood cell count abnormal [Unknown]
  - Weight decreased [Recovered/Resolved]
  - Dysstasia [Unknown]
  - Appetite disorder [Unknown]
  - Depression [Unknown]
  - Fear [Unknown]
  - Nervousness [Unknown]
  - White blood cell count decreased [Recovered/Resolved]
  - Bone pain [Unknown]
  - Back pain [Unknown]
  - Nausea [Unknown]
  - Memory impairment [Not Recovered/Not Resolved]
  - Diarrhoea [Unknown]
  - Feeling abnormal [Unknown]
  - Fatigue [Unknown]
  - Crying [Unknown]
  - Musculoskeletal stiffness [Unknown]
  - Neoplasm progression [Unknown]
  - Menopause [Unknown]
  - Hot flush [Unknown]
  - Anxiety [Unknown]
  - Musculoskeletal discomfort [Unknown]
  - Immune system disorder [Unknown]
